FAERS Safety Report 21794250 (Version 1)
Quarter: 2022Q4

REPORT INFORMATION
  Report Type: Report from Study
  Country: US (occurrence: US)
  Receive Date: 20221229
  Receipt Date: 20221229
  Transmission Date: 20230112
  Serious: Yes (Other)
  Sender: FDA-Public Use
  Company Number: US-JNJFOC-20221246238

PATIENT
  Age: 58 Year
  Sex: Female

DRUGS (1)
  1. SPRAVATO [Suspect]
     Active Substance: ESKETAMINE
     Indication: Depression
     Dosage: 56 MG, 2 DOSES
     Dates: start: 20221018, end: 20221020

REACTIONS (4)
  - Alcoholism [Unknown]
  - Withdrawal syndrome [Unknown]
  - Euphoric mood [Unknown]
  - Anxiety [Unknown]

NARRATIVE: CASE EVENT DATE: 20221001
